FAERS Safety Report 5635048-2 (Version None)
Quarter: 2008Q1

REPORT INFORMATION
  Report Type: 
  Country: None (occurrence: None)
  Receive Date: 20080222
  Receipt Date: 20080212
  Transmission Date: 20080703
  Serious: Yes (Other)
  Sender: FDA-Public Use
  Company Number: US-PFIZER INC-2008016249

PATIENT

DRUGS (1)
  1. SUTENT [Suspect]
     Indication: RENAL CELL CARCINOMA

REACTIONS (4)
  - ASTHENIA [None]
  - MYOSITIS [None]
  - PERICARDIAL EFFUSION [None]
  - PLEURAL EFFUSION [None]
